FAERS Safety Report 8615263-6 (Version None)
Quarter: 2012Q3

REPORT INFORMATION
  Report Type: 
  Country: None (occurrence: None)
  Receive Date: 20120823
  Receipt Date: 20120815
  Transmission Date: 20120928
  Serious: Yes (Other)
  Sender: FDA-Public Use
  Company Number: US-BAYER-2012-085186

PATIENT
  Sex: Female

DRUGS (1)
  1. MIRENA [Suspect]
     Dosage: 20 MCG/24HR, CONT

REACTIONS (7)
  - BREAST PAIN [None]
  - PALLOR [None]
  - ABDOMINAL DISTENSION [None]
  - AMENORRHOEA [None]
  - VAGINAL HAEMORRHAGE [None]
  - NAUSEA [None]
  - HEADACHE [None]
